FAERS Safety Report 7153979-1 (Version None)
Quarter: 2010Q4

REPORT INFORMATION
  Report Type: 
  Country: None (occurrence: None)
  Receive Date: 20101124
  Receipt Date: 20101109
  Transmission Date: 20110411
  Serious: Yes (Hospitalization)
  Sender: FDA-Public Use
  Company Number: 2010004816

PATIENT
  Age: 55 Year
  Sex: Male

DRUGS (5)
  1. ERLOTINIB HYDROCHLORIDE [Suspect]
     Indication: HEPATIC NEOPLASM MALIGNANT
     Dosage: (150 MG,QD),ORAL
     Route: 048
     Dates: start: 20101004, end: 20101019
  2. SORAFENIR [Suspect]
     Indication: HEPATIC NEOPLASM MALIGNANT
     Dosage: (400 MG,QD),ORAL
     Route: 048
     Dates: start: 20101004, end: 20101019
  3. LAMIVUDINE (LAMIVUDINE) [Concomitant]
  4. ADEFOVIR (ADEFOVIR) [Concomitant]
  5. FORTISIP (FORTISIP ) [Concomitant]

REACTIONS (13)
  - ACTIVATED PARTIAL THROMBOPLASTIN TIME PROLONGED [None]
  - ASCITES [None]
  - BLOOD FIBRINOGEN INCREASED [None]
  - CONDITION AGGRAVATED [None]
  - GASTROINTESTINAL HAEMORRHAGE [None]
  - HAEMATOCRIT DECREASED [None]
  - HAEMOGLOBIN DECREASED [None]
  - LYMPHOCYTE COUNT INCREASED [None]
  - MONOCYTE COUNT INCREASED [None]
  - OESOPHAGEAL VARICES HAEMORRHAGE [None]
  - PLATELET COUNT DECREASED [None]
  - RED BLOOD CELL COUNT DECREASED [None]
  - RED CELL DISTRIBUTION WIDTH INCREASED [None]
